FAERS Safety Report 4680272-9 (Version None)
Quarter: 2005Q2

REPORT INFORMATION
  Report Type: 
  Country: None (occurrence: None)
  Receive Date: 20050601
  Receipt Date: 20050517
  Transmission Date: 20051028
  Serious: Yes (Death)
  Sender: FDA-Public Use
  Company Number: MK200505-0194-1

PATIENT
  Age: 78 Year
  Sex: Female

DRUGS (13)
  1. NALTREXONE HCL [Suspect]
     Indication: PRURITUS
     Dosage: UP TO 400 MG, DAILY, PO
     Route: 048
  2. PROMETHAZINE [Concomitant]
  3. GLIMEPIRIDE [Concomitant]
  4. NIFEDIPINE [Concomitant]
  5. FUROSEMIDE [Concomitant]
  6. DIGOXIN [Concomitant]
  7. METOPROLOL [Concomitant]
  8. LOSARTAN POTASSIUM [Concomitant]
  9. LACTITOL [Concomitant]
  10. L-THYROXINE [Concomitant]
  11. ACETAMINOPHEN AND CODEINE PHOSPHATE [Concomitant]
  12. DIAZEPAM [Concomitant]
  13. ACENOCOUMAROL [Concomitant]

REACTIONS (13)
  - ABDOMINAL PAIN UPPER [None]
  - ANXIETY [None]
  - APHAGIA [None]
  - CONDITION AGGRAVATED [None]
  - CONFUSIONAL STATE [None]
  - FREQUENT BOWEL MOVEMENTS [None]
  - GENERAL PHYSICAL HEALTH DETERIORATION [None]
  - HYPERHIDROSIS [None]
  - NAUSEA [None]
  - PAIN [None]
  - PRURITUS [None]
  - RESTLESSNESS [None]
  - VOMITING [None]
